FAERS Safety Report 25085627 (Version 1)
Quarter: 2025Q1

REPORT INFORMATION
  Report Type: Spontaneous
  Country: US (occurrence: None)
  Receive Date: 20250314
  Receipt Date: 20250314
  Transmission Date: 20250409
  Serious: No
  Sender: FDA-CTU
  Company Number: None

PATIENT
  Age: 14 Year
  Sex: Female
  Weight: 69.4 kg

DRUGS (5)
  1. HUMAN IMMUNOGLOBULIN G [Suspect]
     Active Substance: HUMAN IMMUNOGLOBULIN G
     Route: 041
     Dates: start: 20250307, end: 20250307
  2. HUMAN IMMUNOGLOBULIN G [Suspect]
     Active Substance: HUMAN IMMUNOGLOBULIN G
     Indication: Chronic inflammatory demyelinating polyradiculoneuropathy
     Route: 041
     Dates: start: 20250307, end: 20250307
  3. IVIG 40gm vial toward a total of 70 gm [Concomitant]
     Dates: start: 20250307, end: 20250307
  4. IVIG 20 gm vial toward a total of 70 gm [Concomitant]
     Dates: start: 20250307, end: 20250307
  5. IVIG 10 gm vial toward a total of 70 gm [Concomitant]
     Dates: start: 20250307, end: 20250307

REACTIONS (3)
  - Erythema of eyelid [None]
  - Eye pruritus [None]
  - Infusion related reaction [None]

NARRATIVE: CASE EVENT DATE: 20250308
